FAERS Safety Report 22761168 (Version 2)
Quarter: 2024Q1

REPORT INFORMATION
  Report Type: Spontaneous
  Country: JP (occurrence: None)
  Receive Date: 20230728
  Receipt Date: 20240126
  Transmission Date: 20240409
  Serious: No
  Sender: FDA-Public Use
  Company Number: 2022A409607

PATIENT
  Age: 5905 Day
  Sex: Male

DRUGS (8)
  1. KOSELUGO [Suspect]
     Active Substance: SELUMETINIB
     Indication: Neurofibromatosis
     Dosage: NUMBER OF SEPARATE DOSAGES UNKNOWN, GENERALLY ON AN EMPTY STOMACH
     Route: 048
     Dates: start: 20221129, end: 20230207
  2. KOSELUGO [Suspect]
     Active Substance: SELUMETINIB
     Indication: Neurofibromatosis
     Dosage: NUMBER OF SEPARATE DOSAGES UNKNOWN, GENERALLY ON AN EMPTY STOMACH
     Route: 048
     Dates: start: 20221129, end: 20230207
  3. KOSELUGO [Suspect]
     Active Substance: SELUMETINIB
     Indication: Neurofibromatosis
     Dosage: NUMBER OF SEPARATE DOSAGES UNKNOWN, GENERALLY ON AN EMPTY STOMACH
     Route: 048
     Dates: start: 20231204
  4. KOSELUGO [Suspect]
     Active Substance: SELUMETINIB
     Indication: Neurofibromatosis
     Dosage: NUMBER OF SEPARATE DOSAGES UNKNOWN, GENERALLY ON AN EMPTY STOMACH
     Route: 048
     Dates: start: 20231204
  5. KOSELUGO [Suspect]
     Active Substance: SELUMETINIB
     Indication: Neurofibromatosis
     Dosage: NUMBER OF SEPARATE DOSAGES UNKNOWN, GENERALLY ON AN EMPTY STOMACH
     Route: 048
     Dates: start: 20231205
  6. KOSELUGO [Suspect]
     Active Substance: SELUMETINIB
     Indication: Neurofibromatosis
     Dosage: NUMBER OF SEPARATE DOSAGES UNKNOWN, GENERALLY ON AN EMPTY STOMACH
     Route: 048
     Dates: start: 20231205
  7. SILVER SULFADIAZINE [Concomitant]
     Active Substance: SILVER SULFADIAZINE
     Indication: Decubitus ulcer
     Dosage: DOSE UNKNOWN
     Route: 062
     Dates: start: 20230202, end: 20230303
  8. WHITE PETROLATUM [Concomitant]
     Active Substance: PETROLATUM
     Indication: Decubitus ulcer
     Dosage: DOSE UNKNOWN
     Dates: start: 20230202, end: 20230303

REACTIONS (2)
  - Dermatitis [Not Recovered/Not Resolved]
  - Paronychia [Not Recovered/Not Resolved]

NARRATIVE: CASE EVENT DATE: 20221227
